FAERS Safety Report 24034438 (Version 1)
Quarter: 2024Q3

REPORT INFORMATION
  Report Type: Spontaneous
  Country: US (occurrence: None)
  Receive Date: 20240701
  Receipt Date: 20240701
  Transmission Date: 20241016
  Serious: Yes (Hospitalization, Other)
  Sender: EMMAUS LIFE SCIENCES
  Company Number: US-Emmaus Medical, Inc.-EMM202406-000289

PATIENT
  Age: 12 Year
  Sex: Female
  Weight: 57.8 kg

DRUGS (12)
  1. ENDARI [Suspect]
     Active Substance: GLUTAMINE
     Indication: Sickle cell disease
     Dosage: 10 G
     Route: 048
     Dates: start: 20190121
  2. ENDARI [Suspect]
     Active Substance: GLUTAMINE
     Dosage: 5 G
     Route: 048
     Dates: start: 202210
  3. ENDARI [Suspect]
     Active Substance: GLUTAMINE
     Dosage: 10 G
     Route: 048
  4. TYLENOL [Concomitant]
     Active Substance: ACETAMINOPHEN
     Indication: Pain
     Dosage: 2 TABLETS
     Route: 048
  5. CHOLECALCIFEROL [Concomitant]
     Active Substance: CHOLECALCIFEROL
     Indication: Product used for unknown indication
     Dosage: 2 TABLETS [25 MCG (1000 UNITS)]
     Route: 048
  6. CHOLECALCIFEROL [Concomitant]
     Active Substance: CHOLECALCIFEROL
     Dosage: 1 TABLET [25 MCG (1000 UNITS)]
     Route: 048
  7. FOLIC ACID [Concomitant]
     Active Substance: FOLIC ACID
     Indication: Product used for unknown indication
     Dosage: 1 MG (1 TABLET)
     Route: 048
  8. HYDREA [Concomitant]
     Active Substance: HYDROXYUREA
     Indication: Sickle cell anaemia with crisis
     Dosage: 1500 MG (3 CAPSULES)
     Route: 048
  9. MOTRIN [Concomitant]
     Active Substance: IBUPROFEN
     Indication: Pain
     Dosage: 400 MG (1 TABLET)
     Route: 048
  10. ADVIL [Concomitant]
     Active Substance: IBUPROFEN\IBUPROFEN SODIUM
     Indication: Pain
     Dosage: 400 MG (1 TABLET)
     Route: 048
  11. ROXICODONE [Concomitant]
     Active Substance: OXYCODONE HYDROCHLORIDE
     Indication: Pain
     Dosage: 1 TO 1 AND 1/2 TABLETS
     Route: 048
  12. MORPHINE [Concomitant]
     Active Substance: MORPHINE
     Indication: Pain
     Dosage: UNKNOWN
     Route: 065

REACTIONS (21)
  - Cholelithiasis [Recovering/Resolving]
  - Hypersplenism [Not Recovered/Not Resolved]
  - Influenza [Not Recovered/Not Resolved]
  - Nephropathy [Unknown]
  - Sickle cell anaemia with crisis [Unknown]
  - Joint swelling [Unknown]
  - Leukopenia [Not Recovered/Not Resolved]
  - Biliary colic [Recovering/Resolving]
  - Eye pain [Unknown]
  - Pyrexia [Not Recovered/Not Resolved]
  - Cerumen impaction [Not Recovered/Not Resolved]
  - Ear canal injury [Not Recovered/Not Resolved]
  - Cyst [Not Recovered/Not Resolved]
  - Dysmenorrhoea [Unknown]
  - Arthralgia [Unknown]
  - Dizziness [Unknown]
  - Nausea [Not Recovered/Not Resolved]
  - Headache [Not Recovered/Not Resolved]
  - Treatment noncompliance [Unknown]
  - Product dose omission issue [Unknown]
  - Product availability issue [Unknown]

NARRATIVE: CASE EVENT DATE: 20221209
